FAERS Safety Report 6294641-7 (Version None)
Quarter: 2009Q3

REPORT INFORMATION
  Report Type: 
  Country: None (occurrence: None)
  Receive Date: 20090803
  Receipt Date: 20090730
  Transmission Date: 20100115
  Serious: Yes (Life-Threatening)
  Sender: FDA-Public Use
  Company Number: DE-ASTRAZENECA-2009SE06288

PATIENT
  Age: 4881 Day
  Sex: Female
  Weight: 65 kg

DRUGS (1)
  1. MEROPENEM [Suspect]
     Indication: FEBRILE NEUTROPENIA
     Route: 042
     Dates: start: 20090530, end: 20090611

REACTIONS (1)
  - LEUKOENCEPHALOPATHY [None]
